FAERS Safety Report 24458501 (Version 2)
Quarter: 2024Q4

REPORT INFORMATION
  Report Type: Spontaneous
  Country: TR (occurrence: TR)
  Receive Date: 20241018
  Receipt Date: 20241029
  Transmission Date: 20250115
  Serious: Yes (Hospitalization, Other)
  Sender: NOVARTIS
  Company Number: TR-002147023-NVSC2024TR201057

PATIENT
  Age: 45 Year
  Sex: Female

DRUGS (2)
  1. MYFORTIC [Suspect]
     Active Substance: MYCOPHENOLATE SODIUM
     Indication: Organ transplant
     Dosage: 360 MG (EVERY MORNING)
     Route: 065
  2. MYFORTIC [Suspect]
     Active Substance: MYCOPHENOLATE SODIUM
     Dosage: 180 MG (EVERY EVENING)
     Route: 065

REACTIONS (7)
  - Product supply issue [Unknown]
  - Asthenia [Unknown]
  - Dizziness [Unknown]
  - Hypotension [Unknown]
  - Decreased appetite [Unknown]
  - Feeling abnormal [Unknown]
  - Movement disorder [Unknown]
